FAERS Safety Report 5488552-4 (Version None)
Quarter: 2007Q4

REPORT INFORMATION
  Report Type: 
  Country: None (occurrence: None)
  Receive Date: 20071017
  Receipt Date: 20071009
  Transmission Date: 20080405
  Serious: Yes (Death, Hospitalization)
  Sender: FDA-Public Use
  Company Number: US-SANOFI-SYNTHELABO-A03200700428

PATIENT
  Sex: Female

DRUGS (1)
  1. PLAVIX [Suspect]
     Indication: DRUG USE FOR UNKNOWN INDICATION
     Dosage: UNK
     Route: 048

REACTIONS (11)
  - ANAEMIA [None]
  - CHILLS [None]
  - ELECTROLYTE IMBALANCE [None]
  - ENDOCARDITIS STAPHYLOCOCCAL [None]
  - FLANK PAIN [None]
  - PELVIC MASS [None]
  - PNEUMONIA [None]
  - PSOAS ABSCESS [None]
  - RENAL FAILURE [None]
  - RENAL MASS [None]
  - VOMITING [None]
